FAERS Safety Report 7955722-2 (Version None)
Quarter: 2011Q4

REPORT INFORMATION
  Report Type: 
  Country: None (occurrence: None)
  Receive Date: 20111204
  Receipt Date: 20110415
  Transmission Date: 20120403
  Serious: Yes (Hospitalization)
  Sender: FDA-Public Use
  Company Number: PHEH2011US010084

PATIENT
  Sex: Female

DRUGS (1)
  1. EXJADE [Suspect]
     Indication: MYELODYSPLASTIC SYNDROME
     Dosage: 500 MG, DAILY
     Route: 048
     Dates: start: 20100622, end: 20110415

REACTIONS (1)
  - LUNG INFECTION [None]
